FAERS Safety Report 24066164 (Version 1)
Quarter: 2024Q3

REPORT INFORMATION
  Report Type: Report from Study
  Country: US (occurrence: US)
  Receive Date: 20240709
  Receipt Date: 20240709
  Transmission Date: 20241017
  Serious: Yes (Other)
  Sender: PFIZER
  Company Number: US-SEATTLE GENETICS-2024SGN05326

PATIENT
  Age: 55 Year
  Sex: Female

DRUGS (1)
  1. TUKYSA [Suspect]
     Active Substance: TUCATINIB
     Indication: Breast cancer female
     Dosage: UNK
     Route: 065

REACTIONS (5)
  - Thrombosis [Unknown]
  - Blood pressure increased [Unknown]
  - Fatigue [Unknown]
  - Insomnia [Unknown]
  - Diarrhoea [Unknown]
